FAERS Safety Report 10551478 (Version 1)
Quarter: 2014Q4

REPORT INFORMATION
  Report Type: Spontaneous
  Country: US (occurrence: None)
  Receive Date: 20141028
  Receipt Date: 20141028
  Transmission Date: 20150529
  Serious: Yes (Other)
  Sender: FDA-Public Use
  Company Number: None

PATIENT
  Age: 45 Year
  Sex: Male
  Weight: 79.38 kg

DRUGS (1)
  1. FLUOCINONIDE CREAM [Suspect]
     Active Substance: FLUOCINONIDE
     Indication: HYPERSENSITIVITY
     Dosage: TOPICAL 1X DAILY SKIN FOR 3 DAYS
     Route: 061
     Dates: start: 201408

REACTIONS (1)
  - Blister [None]

NARRATIVE: CASE EVENT DATE: 201408
